FAERS Safety Report 19960265 (Version 1)
Quarter: 2021Q4

REPORT INFORMATION
  Report Type: Spontaneous
  Country: US (occurrence: US)
  Receive Date: 20211015
  Receipt Date: 20211015
  Transmission Date: 20220303
  Serious: Yes (Hospitalization)
  Sender: FDA-Public Use
  Company Number: US-ELI_LILLY_AND_COMPANY-US202110003440

PATIENT
  Sex: Female

DRUGS (2)
  1. TRULICITY [Suspect]
     Active Substance: DULAGLUTIDE
     Indication: Diabetes mellitus
     Dosage: 1.5 MG, UNKNOWN
     Route: 058
     Dates: start: 2016
  2. PREDNISONE [Suspect]
     Active Substance: PREDNISONE
     Indication: COVID-19 treatment
     Dosage: UNK UNK, UNKNOWN
     Route: 065

REACTIONS (4)
  - COVID-19 [Unknown]
  - Blood glucose fluctuation [Unknown]
  - Decreased immune responsiveness [Unknown]
  - Injection site pain [Unknown]
